FAERS Safety Report 24558994 (Version 1)
Quarter: 2024Q4

REPORT INFORMATION
  Report Type: Spontaneous
  Country: US (occurrence: US)
  Receive Date: 20241029
  Receipt Date: 20241029
  Transmission Date: 20250115
  Serious: Yes (Death, Other)
  Sender: BRISTOL-MYERS SQUIBB COMPANY
  Company Number: US-BRISTOL-MYERS SQUIBB COMPANY-2024-168598

PATIENT
  Age: 63 Year
  Sex: Female

DRUGS (2)
  1. POMALYST [Suspect]
     Active Substance: POMALIDOMIDE
     Indication: Plasma cell myeloma
     Dosage: FREQUENCY: DAILY X 21 DAYS/TAKE 1 CAPSULE BY MOUTH 1 TIME A DAY FOR 21 DAYS ON AND 7 DAYS OFF
     Route: 048
     Dates: start: 202402
  2. NIVESTYM [FILGRASTIM] [Concomitant]
     Indication: Product used for unknown indication
     Dosage: SD PFS; INJECT 1 SYRINGE INTO THE SKIN 1 TIME DAILY. CONTINUE DAILY FOR 14 DAYS FOLLOWING EPOCH CHEM

REACTIONS (1)
  - Death [Fatal]

NARRATIVE: CASE EVENT DATE: 20240827
